FAERS Safety Report 6306969-2 (Version None)
Quarter: 2009Q3

REPORT INFORMATION
  Report Type: 
  Country: None (occurrence: None)
  Receive Date: 20090812
  Receipt Date: 20090803
  Transmission Date: 20100115
  Serious: Yes (Other)
  Sender: FDA-Public Use
  Company Number: BR-ABBOTT-09P-020-0589097-00

PATIENT
  Sex: Female
  Weight: 45 kg

DRUGS (3)
  1. HUMIRA [Suspect]
     Indication: RHEUMATOID ARTHRITIS
     Route: 058
     Dates: start: 20060928, end: 20090726
  2. COLCHICINE [Concomitant]
     Indication: RHEUMATOID ARTHRITIS
     Route: 048
  3. CHOLECALCIFEROL [Concomitant]
     Indication: RHEUMATOID ARTHRITIS
     Route: 048
     Dates: start: 20090601

REACTIONS (3)
  - FOOT DEFORMITY [None]
  - GINGIVAL CYST [None]
  - GINGIVITIS [None]
